FAERS Safety Report 25346450 (Version 2)
Quarter: 2025Q2

REPORT INFORMATION
  Report Type: Report from Study
  Country: US (occurrence: US)
  Receive Date: 20250522
  Receipt Date: 20250528
  Transmission Date: 20250716
  Serious: Yes (Hospitalization)
  Sender: SUNOVION
  Company Number: US-SMPA-2025SPA006347

PATIENT

DRUGS (1)
  1. ORGOVYX [Suspect]
     Active Substance: RELUGOLIX
     Indication: Prostate cancer
     Dosage: 1 DF, QD (TAKE 1 TABLET BY MOUTH ONCE DAILY AROUND THE SAME TIME EACH DAY)
     Route: 048

REACTIONS (1)
  - Cardiac disorder [Unknown]
